FAERS Safety Report 21879805 (Version 8)
Quarter: 2025Q2

REPORT INFORMATION
  Report Type: Spontaneous
  Country: US (occurrence: US)
  Receive Date: 20230118
  Receipt Date: 20250410
  Transmission Date: 20250716
  Serious: No
  Sender: PFIZER
  Company Number: US-PFIZER INC-2021143338

PATIENT
  Age: 70 Year
  Sex: Male
  Weight: 104.32 kg

DRUGS (7)
  1. VYNDAMAX [Suspect]
     Active Substance: TAFAMIDIS
     Indication: Acquired ATTR amyloidosis
     Dosage: 61 MG, 1X/DAY
     Route: 048
     Dates: start: 2020
  2. LISINOPRIL [Concomitant]
     Active Substance: LISINOPRIL
     Dosage: 20 MG, 1X/DAY
  3. FUROSEMIDE [Concomitant]
     Active Substance: FUROSEMIDE
     Dosage: 20 MG, 1X/DAY
  4. DOFETILIDE [Concomitant]
     Active Substance: DOFETILIDE
     Dosage: 125 MG, 2X/DAY
  5. SPIRONOLACTONE [Concomitant]
     Active Substance: SPIRONOLACTONE
     Dosage: 25 MG, 1X/DAY
  6. CARVEDILOL [Concomitant]
     Active Substance: CARVEDILOL
     Dosage: 6.25 MG, 1X/DAY
  7. JANTOVEN [Concomitant]
     Active Substance: WARFARIN SODIUM
     Dosage: 7.5 MG, 1X/DAY

REACTIONS (3)
  - Illness [Unknown]
  - Influenza [Unknown]
  - Anxiety [Unknown]
